FAERS Safety Report 15719583 (Version 1)
Quarter: 2018Q4

REPORT INFORMATION
  Report Type: Spontaneous
  Country: PK (occurrence: PK)
  Receive Date: 20181213
  Receipt Date: 20181213
  Transmission Date: 20190205
  Serious: Yes (Other)
  Sender: FDA-Public Use
  Company Number: PK-FRESENIUS KABI-FK201812666

PATIENT
  Age: 66 Year
  Sex: Female

DRUGS (2)
  1. ATROPINE (MANUFACTURER UNKNOWN) [Suspect]
     Active Substance: ATROPINE
     Indication: CARDIAC STRESS TEST
     Dosage: 0,4 MILLIGRAM
     Route: 042
  2. DOBUTAMINE [Suspect]
     Active Substance: DOBUTAMINE\DOBUTAMINE HYDROCHLORIDE
     Indication: CARDIAC STRESS TEST
     Dosage: INCREMENTAL DOSES STARTING AT 10MCG/KG AND INCREASED 20MCG/KG
     Route: 042

REACTIONS (1)
  - Stress cardiomyopathy [Recovered/Resolved]
